FAERS Safety Report 6967179-9 (Version None)
Quarter: 2010Q3

REPORT INFORMATION
  Report Type: 
  Country: None (occurrence: None)
  Receive Date: 20100901
  Receipt Date: 20100813
  Transmission Date: 20110219
  Serious: Yes (Other)
  Sender: FDA-Public Use
  Company Number: 7014200

PATIENT
  Age: 26 Year
  Sex: Female

DRUGS (4)
  1. LEVOTHYROXINE SODIUM [Suspect]
     Indication: THYROIDITIS
     Dosage: 50 MG, ORAL
     Route: 048
     Dates: start: 20100726, end: 20100803
  2. JODID (POTASSIUM IODIDE) (POTASSIUM IODIDE) [Concomitant]
  3. MULTI-VITAMINS [Concomitant]
  4. FOLINIC ACID (FOLINIC ACID) (FOLINIC ACID) [Concomitant]

REACTIONS (5)
  - ARTHRALGIA [None]
  - DRUG EXPOSURE DURING PREGNANCY [None]
  - JOINT STIFFNESS [None]
  - MOBILITY DECREASED [None]
  - PAIN [None]
